APPROVED DRUG PRODUCT: GRIFULVIN V
Active Ingredient: GRISEOFULVIN, MICROSIZE
Strength: 125MG/5ML **Federal Register determination that product was not discontinued or withdrawn for safety or effectiveness reasons**
Dosage Form/Route: SUSPENSION;ORAL
Application: A062483 | Product #001
Applicant: VALEANT PHARMACEUTICALS LUXEMBOURG SARL
Approved: Jan 26, 1984 | RLD: No | RS: No | Type: DISCN